FAERS Safety Report 25574837 (Version 1)
Quarter: 2025Q3

REPORT INFORMATION
  Report Type: Spontaneous
  Country: CA (occurrence: CA)
  Receive Date: 20250718
  Receipt Date: 20250718
  Transmission Date: 20251020
  Serious: Yes (Hospitalization)
  Sender: ACCORD
  Company Number: None

PATIENT
  Age: 46 Year
  Sex: Female
  Weight: 53 kg

DRUGS (12)
  1. PACLITAXEL [Suspect]
     Active Substance: PACLITAXEL
     Indication: Breast cancer metastatic
     Route: 042
  2. BUPROPION HYDROCHLORIDE [Concomitant]
     Active Substance: BUPROPION HYDROCHLORIDE
     Route: 065
  3. CALCIUM [Concomitant]
     Active Substance: CALCIUM
  4. CITALOPRAM [Concomitant]
     Active Substance: CITALOPRAM
  5. CLONAZEPAM [Concomitant]
     Active Substance: CLONAZEPAM
  6. DEXAMETHASONE [Concomitant]
     Active Substance: DEXAMETHASONE
  7. DIPHENHYDRAMINE [Concomitant]
     Active Substance: DIPHENHYDRAMINE
  8. FAMOTIDINE [Concomitant]
     Active Substance: FAMOTIDINE
  9. LOPERAMIDE [Concomitant]
     Active Substance: LOPERAMIDE
  10. PANTOPRAZOLE [Concomitant]
     Active Substance: PANTOPRAZOLE
  11. QUETIAPINE [Concomitant]
     Active Substance: QUETIAPINE
  12. VITAMIN D [Concomitant]
     Active Substance: VITAMIN D NOS

REACTIONS (5)
  - Acute kidney injury [Recovered/Resolved]
  - Hypercalcaemia [Recovered/Resolved]
  - Nausea [Recovered/Resolved]
  - Vomiting [Recovered/Resolved]
  - Diarrhoea [Recovered/Resolved]
